FAERS Safety Report 5513776-7 (Version None)
Quarter: 2007Q4

REPORT INFORMATION
  Report Type: 
  Country: None (occurrence: None)
  Receive Date: 20071113
  Receipt Date: 20071106
  Transmission Date: 20080405
  Serious: Yes (Death)
  Sender: FDA-Public Use
  Company Number: PHNR2007AU02058

PATIENT
  Age: 26 Year
  Sex: Male

DRUGS (1)
  1. CLOZARIL [Suspect]
     Dosage: 12.5 MG - 225 MG DAILY
     Route: 048
     Dates: start: 20061004, end: 20070922

REACTIONS (1)
  - COMPLETED SUICIDE [None]
